FAERS Safety Report 9336747 (Version 1)
Quarter: 2013Q2

REPORT INFORMATION
  Report Type: Spontaneous
  Country: TW (occurrence: TW)
  Receive Date: 20130607
  Receipt Date: 20130607
  Transmission Date: 20140414
  Serious: Yes (Other)
  Sender: FDA-Public Use
  Company Number: PHHY2013TW056279

PATIENT
  Age: 70 Year
  Sex: Male

DRUGS (2)
  1. 5-FLUOROURACIL [Suspect]
     Indication: RECTAL CANCER STAGE III
     Dosage: 450 MG/M2, UNK
  2. FOLINIC ACID [Suspect]
     Indication: RECTAL CANCER STAGE III
     Dosage: 30 MG/M2, UNK

REACTIONS (3)
  - Pseudomembranous colitis [Recovered/Resolved]
  - Diarrhoea [Recovered/Resolved]
  - Mucosal necrosis [Recovered/Resolved]
